FAERS Safety Report 9581147 (Version 1)
Quarter: 2013Q4

REPORT INFORMATION
  Report Type: Spontaneous
  Country: BR (occurrence: BR)
  Receive Date: 20131002
  Receipt Date: 20131002
  Transmission Date: 20140711
  Serious: Yes (Hospitalization, Other)
  Sender: FDA-Public Use
  Company Number: BR-PFIZER INC-2013277876

PATIENT
  Age: 59 Year
  Sex: Female

DRUGS (8)
  1. CELEBRA [Suspect]
     Indication: PAIN
     Dosage: UNK
     Dates: start: 2005
  2. CELEBRA [Suspect]
     Indication: OSTEOARTHRITIS
  3. CELEBRA [Suspect]
     Indication: SPINAL PAIN
  4. ABLOK PLUS [Concomitant]
     Indication: BLOOD PRESSURE INCREASED
     Dosage: UNK
     Dates: start: 2006
  5. OMEGA 3 [Concomitant]
     Indication: PAIN
     Dosage: UNK
     Dates: start: 201304
  6. OMEGA 3 [Concomitant]
     Indication: OSTEOARTHRITIS
  7. CYMBALTA [Concomitant]
     Indication: PAIN
     Dosage: UNK
     Dates: start: 2011
  8. CYMBALTA [Concomitant]
     Indication: DEPRESSION

REACTIONS (5)
  - Spinal disorder [Unknown]
  - Deafness [Unknown]
  - Tinnitus [Unknown]
  - Labyrinthitis [Unknown]
  - Osteoarthritis [Unknown]
